FAERS Safety Report 5192231-0 (Version None)
Quarter: 2006Q4

REPORT INFORMATION
  Report Type: 
  Country: None (occurrence: None)
  Receive Date: 20061220
  Receipt Date: 20061206
  Transmission Date: 20070319
  Serious: No
  Sender: FDA-Public Use
  Company Number: E2020-00758-SPO-GB

PATIENT
  Sex: Male

DRUGS (1)
  1. ARICEPT [Suspect]
     Indication: COGNITIVE DISORDER
     Dosage: ORAL
     Route: 048

REACTIONS (3)
  - COGNITIVE DISORDER [None]
  - SYNCOPE [None]
  - VENTRICULAR TACHYCARDIA [None]
